FAERS Safety Report 19773074 (Version 2)
Quarter: 2021Q3

REPORT INFORMATION
  Report Type: Report from Study
  Country: FR (occurrence: FR)
  Receive Date: 20210901
  Receipt Date: 20210911
  Transmission Date: 20211014
  Serious: Yes (Other)
  Sender: FDA-Public Use
  Company Number: FR-AMGEN-FRANI2021132851

PATIENT
  Age: 47 Year
  Sex: Female

DRUGS (3)
  1. AMG 510 [Suspect]
     Active Substance: AMG-510
     Dosage: 480 MILLIGRAM
     Route: 065
     Dates: start: 20210902
  2. AMG 510 [Suspect]
     Active Substance: AMG-510
     Indication: NON-SMALL CELL LUNG CANCER
     Dosage: 960 MILLIGRAM, 1/J
     Route: 065
     Dates: start: 20210615, end: 20210816
  3. PARACETAMOL [Concomitant]
     Active Substance: ACETAMINOPHEN
     Dosage: 1 GRAM/J MAXIMUM

REACTIONS (1)
  - Cell death [Recovered/Resolved]
